FAERS Safety Report 8153029-4 (Version None)
Quarter: 2012Q1

REPORT INFORMATION
  Report Type: 
  Country: None (occurrence: None)
  Receive Date: 20120221
  Receipt Date: 20120214
  Transmission Date: 20120608
  Serious: No
  Sender: FDA-Public Use
  Company Number: US-ENDO PHARMACEUTICALS INC.-PREV20110036

PATIENT
  Sex: Female

DRUGS (2)
  1. PREVIFEM [Suspect]
     Indication: CONTRACEPTION
     Dosage: UNKNOWN
     Route: 048
  2. NORGESTIMATE/ETHINYL ESTRADIOL [Suspect]
     Indication: CONTRACEPTION
     Dosage: UNKNOWN
     Route: 048

REACTIONS (5)
  - PREGNANCY ON ORAL CONTRACEPTIVE [None]
  - DRUG INEFFECTIVE [None]
  - PRODUCT QUALITY ISSUE [None]
  - LIVE BIRTH [None]
  - INJURY [None]
